FAERS Safety Report 4307381-8 (Version None)
Quarter: 2004Q1

REPORT INFORMATION
  Report Type: 
  Country: None (occurrence: None)
  Receive Date: 20040226
  Receipt Date: 20040217
  Transmission Date: 20041129
  Serious: Yes (Hospitalization)
  Sender: FDA-Public Use
  Company Number: ZONI001232

PATIENT
  Age: 23 Year
  Sex: Male

DRUGS (1)
  1. ZONEGRAN [Suspect]
     Indication: EPILEPSY
     Dates: start: 20030601, end: 20030901

REACTIONS (15)
  - AGITATION [None]
  - BIPOLAR DISORDER [None]
  - DECREASED APPETITE [None]
  - DELUSION [None]
  - HALLUCINATION [None]
  - HALLUCINATION, AUDITORY [None]
  - HYPOMANIA [None]
  - IDEAS OF REFERENCE [None]
  - INSOMNIA [None]
  - MANIA [None]
  - MEDICATION ERROR [None]
  - OBSESSIVE THOUGHTS [None]
  - PARANOIA [None]
  - PSYCHOTIC DISORDER [None]
  - TREATMENT NONCOMPLIANCE [None]
